FAERS Safety Report 7460179-4 (Version None)
Quarter: 2011Q2

REPORT INFORMATION
  Report Type: 
  Country: None (occurrence: None)
  Receive Date: 20110505
  Receipt Date: 20110427
  Transmission Date: 20111010
  Serious: Yes (Hospitalization)
  Sender: FDA-Public Use
  Company Number: DE-ROCHE-767877

PATIENT
  Sex: Female
  Weight: 66 kg

DRUGS (14)
  1. OXALIPLATIN [Suspect]
     Dosage: DOSE REDUCED, DOSAGE FORM: INFUSION. LAST DOSE PRIOR TO SAE: 13 MARCH 2011.
     Route: 042
     Dates: start: 20110217
  2. FLUOROURACIL [Suspect]
     Dosage: DOSAGE FORM: INFUSION, LAST DOSE PRIOR TO SAE: 13 MARCH 2011.
     Route: 042
     Dates: start: 20110217
  3. FOLINIC ACID [Suspect]
     Dosage: DOSAGE FORM: 400 MG/M2 LAST DOSE PRIOR TO SAE: 10 MARCH 2011.
     Route: 042
     Dates: start: 20110210
  4. METAMIZOL [Concomitant]
     Dosage: AS ON DEMAND. TDD: 30 TIP
  5. TORSEMIDE [Concomitant]
     Dosage: DOSE FORM : 10 MG
  6. FOLINIC ACID [Suspect]
     Dosage: DOSAGE FORM: INFUSION. LAST DOSE PRIOR TO SAE: 13 MARCH 2011.
     Route: 042
     Dates: start: 20110217
  7. ALDACTONE [Concomitant]
  8. FLUOROURACIL [Suspect]
     Dosage: DOSAGE FORM: 2400 MG/M2. LAST DOSE PRIOR TO SAE: 10 MARCH 2011.
     Route: 042
     Dates: start: 20110210
  9. RAMIPRIL [Concomitant]
  10. BEVACIZUMAB [Suspect]
     Dosage: DOSAGE FORM: 5 MG/KG. LAST DOSE PRIOR TO SAE: 10 MARCH 2011.
     Route: 042
     Dates: start: 20110217
  11. BEVACIZUMAB [Suspect]
     Dosage: DOSAGE FORM : INFUSION LAST DOSE PRIOR TO SAE: 13 MARCH 2011.
     Route: 042
  12. OXALIPLATIN [Suspect]
     Dosage: DOSAGE FORM: 85 MG/M2 LAST DOSE PRIOR TO SAE: 10 MARCH 2011.
     Route: 042
     Dates: start: 20110210
  13. BISOPROLOL FUMARATE [Concomitant]
  14. CONCOR [Concomitant]
     Dosage: DOSE FORM: 5 MG

REACTIONS (3)
  - GENERAL PHYSICAL HEALTH DETERIORATION [None]
  - INFECTION [None]
  - DEHYDRATION [None]
